FAERS Safety Report 7291891-8 (Version None)
Quarter: 2011Q1

REPORT INFORMATION
  Report Type: 
  Country: None (occurrence: None)
  Receive Date: 20110214
  Receipt Date: 20110209
  Transmission Date: 20110831
  Serious: Yes (Death, Life-Threatening, Hospitalization, Other)
  Sender: FDA-Public Use
  Company Number: PHHO2010NL09032

PATIENT
  Sex: Male
  Weight: 54 kg

DRUGS (33)
  1. ACZ885 [Suspect]
     Indication: JUVENILE ARTHRITIS
     Dosage: 4 MG/KG
     Route: 058
     Dates: start: 20100412
  2. INDOMETHACIN [Concomitant]
  3. PARAFFIN [Concomitant]
  4. INDOMETACIN [Concomitant]
  5. PREDNISOLONE [Concomitant]
  6. CETOMACROGOL [Concomitant]
  7. METHOTREXATE [Concomitant]
  8. PREDNISONE TAB [Concomitant]
     Indication: HISTIOCYTOSIS HAEMATOPHAGIC
  9. CALCICHEW [Concomitant]
  10. FUROSEMIDE [Concomitant]
  11. METOJECT [Concomitant]
  12. TAVEGIL [Concomitant]
  13. SPIRONOLACTONE [Concomitant]
  14. NO TREATMENT RECEIVED [Suspect]
     Indication: JUVENILE ARTHRITIS
     Dosage: NO TREATMENT
  15. ERYTHROCINE [Concomitant]
  16. POTASSIUM CHLORIDE [Concomitant]
  17. MIDAZOLAM [Concomitant]
  18. OMEPRAZOLE [Concomitant]
  19. DAKTACORT [Concomitant]
  20. DI-ADRESON [Concomitant]
  21. EMTHEXATE [Concomitant]
  22. FENTANYL [Concomitant]
  23. FORTUM [Concomitant]
  24. NALOXONE [Concomitant]
  25. ACZ885 [Suspect]
     Dosage: 4 MG/KG
     Route: 058
     Dates: start: 20100609
  26. FOLIC ACID [Concomitant]
  27. METHOTREXAT [Concomitant]
  28. PERFALGAN [Concomitant]
  29. ZITHROMAX [Concomitant]
  30. ANEXATE [Concomitant]
  31. BETNELAN [Concomitant]
  32. PRILOSEC [Concomitant]
  33. SILKIS [Concomitant]

REACTIONS (27)
  - SPLENOMEGALY [None]
  - ATELECTASIS [None]
  - DEPRESSED LEVEL OF CONSCIOUSNESS [None]
  - VENOOCCLUSIVE DISEASE [None]
  - RESPIRATORY FAILURE [None]
  - MICTURITION FREQUENCY DECREASED [None]
  - CONVULSION [None]
  - HYPOTENSION [None]
  - DISORIENTATION [None]
  - ELECTROENCEPHALOGRAM ABNORMAL [None]
  - PULMONARY HYPERTENSION [None]
  - SOMNOLENCE [None]
  - ABNORMAL BEHAVIOUR [None]
  - INTERSTITIAL LUNG DISEASE [None]
  - ASCITES [None]
  - HISTIOCYTOSIS HAEMATOPHAGIC [None]
  - HEPATOMEGALY [None]
  - TACHYPNOEA [None]
  - HEART RATE DECREASED [None]
  - DECREASED APPETITE [None]
  - THROMBOCYTOPENIA [None]
  - PYREXIA [None]
  - RIGHT VENTRICULAR HYPERTROPHY [None]
  - MEDIASTINAL SHIFT [None]
  - MALAISE [None]
  - MECHANICAL VENTILATION [None]
  - COMPUTERISED TOMOGRAM ABNORMAL [None]
